FAERS Safety Report 13269544 (Version 1)
Quarter: 2017Q1

REPORT INFORMATION
  Report Type: Spontaneous
  Country: FR (occurrence: FR)
  Receive Date: 20170224
  Receipt Date: 20170224
  Transmission Date: 20170428
  Serious: Yes (Life-Threatening)
  Sender: FDA-Public Use
  Company Number: FR-UCBSA-2017007055

PATIENT
  Age: 46 Year
  Sex: Male

DRUGS (16)
  1. ATARAX [Suspect]
     Active Substance: HYDROXYZINE HYDROCHLORIDE
     Indication: PRODUCT USED FOR UNKNOWN INDICATION
     Dosage: 100 MG, 3X/DAY (TID)
     Route: 048
     Dates: end: 20170101
  2. VALIUM [Suspect]
     Active Substance: DIAZEPAM
     Indication: PSYCHOTIC DISORDER
     Dosage: 5 MG, 3X/DAY (TID) STRENGTH: 5 MG
     Route: 048
     Dates: end: 20170101
  3. IBUPROFEN. [Concomitant]
     Active Substance: IBUPROFEN
     Indication: PRODUCT USED FOR UNKNOWN INDICATION
     Dosage: 200 MG, AS NEEDED (PRN)
  4. DEPAKOTE [Suspect]
     Active Substance: DIVALPROEX SODIUM
     Indication: EPILEPSY
     Dosage: STRENGTH: 500 MG (1-1-2)
     Route: 048
     Dates: end: 201612
  5. PARACETAMOL [Concomitant]
     Active Substance: ACETAMINOPHEN
     Indication: PRODUCT USED FOR UNKNOWN INDICATION
     Dosage: UNK, AS NEEDED (PRN)
  6. CLOPIXOL [Suspect]
     Active Substance: ZUCLOPENTHIXOL ACETATE
     Indication: PSYCHOTIC DISORDER
     Dosage: 25 MG, 3X/DAY (TID)
     Route: 048
     Dates: end: 20170101
  7. HEPT A MYL [Concomitant]
     Active Substance: HEPTAMINOL HYDROCHLORIDE
     Indication: PRODUCT USED FOR UNKNOWN INDICATION
     Dosage: 16 MG, 3X/DAY (TID)
  8. TRIHEXYPHENIDYL HYDROCHLORIDE. [Concomitant]
     Active Substance: TRIHEXYPHENIDYL HYDROCHLORIDE
     Indication: PRODUCT USED FOR UNKNOWN INDICATION
     Dosage: 5 MG, ONCE DAILY (QD)
  9. INEXIUM [Concomitant]
     Active Substance: ESOMEPRAZOLE
     Indication: PRODUCT USED FOR UNKNOWN INDICATION
     Dosage: 20 MG, ONCE DAILY (QD)
  10. SPASFON [Concomitant]
     Active Substance: PHLOROGLUCINOL
     Indication: PRODUCT USED FOR UNKNOWN INDICATION
     Dosage: 2 DF, 3X/DAY (TID)
  11. DEPAKOTE [Suspect]
     Active Substance: DIVALPROEX SODIUM
     Dosage: 2500 MG DAILY
     Route: 048
     Dates: start: 20161229, end: 201701
  12. DEPAKOTE [Suspect]
     Active Substance: DIVALPROEX SODIUM
     Dosage: 2000 MG DAILY
     Route: 048
     Dates: start: 20170102, end: 20170102
  13. ZYPREXA [Suspect]
     Active Substance: OLANZAPINE
     Indication: PSYCHOTIC DISORDER
     Dosage: 10 MG, 2X/DAY (BID)
     Route: 048
     Dates: end: 20170102
  14. KEPPRA [Suspect]
     Active Substance: LEVETIRACETAM
     Indication: EPILEPSY
     Dosage: 1 DF, 2X/DAY (BID)
     Route: 048
     Dates: start: 20161231, end: 20170102
  15. LOXAPAC [Suspect]
     Active Substance: LOXAPINE SUCCINATE
     Indication: PSYCHOTIC DISORDER
     Dosage: 50 MG, 3X/DAY (TID)
     Route: 048
     Dates: end: 20170101
  16. MOVICOL [Concomitant]
     Active Substance: POLYETHYLENE GLYCOL 3350\POTASSIUM CHLORIDE\SODIUM BICARBONATE\SODIUM CHLORIDE
     Indication: PRODUCT USED FOR UNKNOWN INDICATION
     Dosage: UNK

REACTIONS (3)
  - Pneumonia aspiration [Recovered/Resolved]
  - Anticonvulsant drug level increased [Recovered/Resolved]
  - Altered state of consciousness [Recovered/Resolved]

NARRATIVE: CASE EVENT DATE: 20161231
